FAERS Safety Report 25287881 (Version 3)
Quarter: 2025Q2

REPORT INFORMATION
  Report Type: Spontaneous
  Country: US (occurrence: US)
  Receive Date: 20250509
  Receipt Date: 20250624
  Transmission Date: 20250717
  Serious: No
  Sender: AMGEN
  Company Number: US-AMGEN-USASP2025088663

PATIENT
  Age: 68 Year
  Sex: Male

DRUGS (1)
  1. REPATHA [Suspect]
     Active Substance: EVOLOCUMAB
     Indication: Hypercholesterolaemia
     Dosage: 140 MILLIGRAM, Q2WK
     Route: 058
     Dates: start: 20250417, end: 20250501

REACTIONS (9)
  - Pruritus [Recovering/Resolving]
  - Nasal congestion [Recovering/Resolving]
  - Aphonia [Recovering/Resolving]
  - Rhinorrhoea [Recovering/Resolving]
  - Influenza like illness [Recovering/Resolving]
  - Urticaria [Recovering/Resolving]
  - Injection site bruising [Recovering/Resolving]
  - Drug hypersensitivity [Unknown]
  - Nasopharyngitis [Unknown]

NARRATIVE: CASE EVENT DATE: 20250417
